FAERS Safety Report 7058060-8 (Version None)
Quarter: 2010Q4

REPORT INFORMATION
  Report Type: 
  Country: None (occurrence: None)
  Receive Date: 20101022
  Receipt Date: 20100906
  Transmission Date: 20110411
  Serious: Yes (Life-Threatening, Hospitalization, Other)
  Sender: FDA-Public Use
  Company Number: DE-PFIZER INC-2008069911

PATIENT
  Age: 51 Year
  Sex: Female

DRUGS (3)
  1. CLINDAMYCIN HCL [Suspect]
     Dosage: 300 MG, 4X/DAY
     Route: 048
     Dates: start: 20061010, end: 20061014
  2. WOBENZYM [Concomitant]
     Indication: SINUSITIS
     Dosage: UNK
     Dates: start: 20061010
  3. EUPHORBIUM COMP [Concomitant]
     Indication: SINUSITIS
     Dosage: UNK
     Dates: start: 20061010

REACTIONS (3)
  - ANTIPHOSPHOLIPID SYNDROME [None]
  - PSEUDOMEMBRANOUS COLITIS [None]
  - THROMBOPHLEBITIS SUPERFICIAL [None]
